FAERS Safety Report 5500065-X (Version None)
Quarter: 2007Q4

REPORT INFORMATION
  Report Type: 
  Country: None (occurrence: None)
  Receive Date: 20071024
  Receipt Date: 20071011
  Transmission Date: 20080405
  Serious: Yes (Other)
  Sender: FDA-Public Use
  Company Number: 2007333437

PATIENT
  Sex: Female

DRUGS (1)
  1. NICOTINE [Suspect]
     Dosage: 1 PATCH, TRANSDERMAL
     Route: 062
     Dates: start: 20070101

REACTIONS (6)
  - DISEASE RECURRENCE [None]
  - DISTURBANCE IN ATTENTION [None]
  - NERVOUSNESS [None]
  - NIGHTMARE [None]
  - PALPITATIONS [None]
  - PSYCHOTIC DISORDER [None]
